FAERS Safety Report 18194640 (Version 4)
Quarter: 2020Q3

REPORT INFORMATION
  Report Type: Report from Study
  Country: US (occurrence: US)
  Receive Date: 20200826
  Receipt Date: 20200929
  Transmission Date: 20201103
  Serious: Yes (Other)
  Sender: FDA-Public Use
  Company Number: US-BEH-2020121566

PATIENT
  Age: 68 Year
  Sex: Female
  Weight: 56.24 kg

DRUGS (6)
  1. HIZENTRA [Suspect]
     Active Substance: HUMAN IMMUNOGLOBULIN G
     Dosage: 8 UNK
     Route: 058
     Dates: start: 20200815, end: 20200815
  2. HIZENTRA [Suspect]
     Active Substance: HUMAN IMMUNOGLOBULIN G
     Indication: GRANULOMATOSIS WITH POLYANGIITIS
     Dosage: 1 GRAM, QW (1TW)  AND 2X40ML 4G
     Route: 058
     Dates: start: 20200815
  3. TYLENOL [Concomitant]
     Active Substance: ACETAMINOPHEN
     Indication: PREMEDICATION
     Dosage: 1.0 1X
     Route: 048
     Dates: start: 20200815
  4. BENADRYL [Concomitant]
     Active Substance: DIPHENHYDRAMINE HYDROCHLORIDE
     Indication: PREMEDICATION
     Route: 048
  5. BENADRYL [Suspect]
     Active Substance: DIPHENHYDRAMINE HYDROCHLORIDE
     Indication: PREMEDICATION
     Dosage: 1
     Route: 048
     Dates: start: 20200815
  6. HIZENTRA [Suspect]
     Active Substance: HUMAN IMMUNOGLOBULIN G
     Dosage: 8 GRAM, QW
     Route: 058
     Dates: start: 20200812

REACTIONS (26)
  - Migraine with aura [Unknown]
  - Ear congestion [Unknown]
  - Hypersensitivity [Unknown]
  - Muscle twitching [Unknown]
  - Ear pain [Unknown]
  - No adverse event [Unknown]
  - Burning sensation [Unknown]
  - Dizziness [Unknown]
  - Injection site pain [Unknown]
  - Nausea [Unknown]
  - Rash erythematous [Unknown]
  - Fear [Unknown]
  - Cough [Unknown]
  - Neuralgia [Recovered/Resolved]
  - Rash [Unknown]
  - Myalgia [Unknown]
  - Back pain [Unknown]
  - Product use in unapproved indication [Unknown]
  - Hypoacusis [Unknown]
  - Ear discomfort [Unknown]
  - Presyncope [Unknown]
  - Fatigue [Unknown]
  - Abdominal pain [Unknown]
  - Headache [Recovering/Resolving]
  - Musculoskeletal stiffness [Unknown]
  - Hypoaesthesia [Unknown]

NARRATIVE: CASE EVENT DATE: 20200815
